FAERS Safety Report 17606907 (Version 1)
Quarter: 2020Q1

REPORT INFORMATION
  Report Type: Report from Study
  Country: US (occurrence: US)
  Receive Date: 20200331
  Receipt Date: 20200331
  Transmission Date: 20200409
  Serious: Yes (Other)
  Sender: FDA-Public Use
  Company Number: US-GILEAD-2020-0457232

PATIENT
  Age: 48 Year
  Sex: Female

DRUGS (1)
  1. AZTREONAM LYSINE [Suspect]
     Active Substance: AZTREONAM LYSINE
     Indication: CYSTIC FIBROSIS
     Dosage: INHALE 75 MG VIA ALTERA NEBULIZER 3 TIMES A DAY, 2 WEEKS ON AND 2 WEEKS OFF
     Route: 055

REACTIONS (2)
  - Infection [Unknown]
  - Central venous catheterisation [Not Recovered/Not Resolved]
